FAERS Safety Report 22885348 (Version 3)
Quarter: 2024Q1

REPORT INFORMATION
  Report Type: Report from Study
  Country: US (occurrence: US)
  Receive Date: 20230831
  Receipt Date: 20240219
  Transmission Date: 20240410
  Serious: Yes (Other)
  Sender: FDA-Public Use
  Company Number: US-002147023-NVSC2023US186170

PATIENT
  Sex: Female

DRUGS (1)
  1. KESIMPTA [Suspect]
     Active Substance: OFATUMUMAB
     Indication: Relapsing multiple sclerosis
     Dosage: UNK
     Route: 065
     Dates: start: 20230818

REACTIONS (15)
  - Multiple sclerosis [Recovering/Resolving]
  - Musculoskeletal disorder [Unknown]
  - Hypoaesthesia [Unknown]
  - Decreased appetite [Unknown]
  - Chest pain [Unknown]
  - Blood pressure increased [Unknown]
  - Constipation [Unknown]
  - Dyspepsia [Unknown]
  - Back pain [Unknown]
  - Dyspnoea [Unknown]
  - Pyrexia [Unknown]
  - Injection site pain [Unknown]
  - Nausea [Unknown]
  - Fatigue [Unknown]
  - Diarrhoea [Unknown]
